FAERS Safety Report 6557734-2 (Version None)
Quarter: 2010Q1

REPORT INFORMATION
  Report Type: 
  Country: None (occurrence: None)
  Receive Date: 20100128
  Receipt Date: 20100128
  Transmission Date: 20100710
  Serious: No
  Sender: FDA-Public Use
  Company Number: None

PATIENT
  Sex: Female
  Weight: 77.1115 kg

DRUGS (2)
  1. PRILOSEC [Suspect]
     Indication: EROSIVE OESOPHAGITIS
     Dosage: 10 MG OR 20 MG QDAY P.O. 3-4 YEARS AGO {/WK
     Route: 048
  2. OMEPRAZOLE [Suspect]
     Indication: EROSIVE OESOPHAGITIS
     Dosage: 20 MG QDAY P.O. 3-4 YEARS AGO {/WK
     Route: 048

REACTIONS (2)
  - PRODUCT SUBSTITUTION ISSUE [None]
  - TABLET ISSUE [None]
